FAERS Safety Report 8476351 (Version 3)
Quarter: 2014Q1

REPORT INFORMATION
  Report Type: Spontaneous
  Country: US (occurrence: US)
  Receive Date: 20120326
  Receipt Date: 20140319
  Transmission Date: 20141002
  Serious: Yes (Other)
  Sender: FDA-Public Use
  Company Number: US-PFIZER INC-2012072120

PATIENT
  Age: 45 Year
  Sex: Female

DRUGS (31)
  1. LYRICA [Suspect]
     Indication: FIBROMYALGIA
     Dosage: 150 MG, 2X/DAY
     Route: 048
  2. LYRICA [Suspect]
     Dosage: 150 MG, 3X/DAY (75 MG 2 TABS TID)
     Route: 048
  3. LEVOXYL [Concomitant]
     Dosage: 112MCG DAILY
  4. DEXILANT [Concomitant]
     Dosage: 60MG DAILY
  5. ASACOL HD [Concomitant]
     Dosage: 800MG 1-2 TABS DAILY
  6. EFFEXOR-XR [Concomitant]
     Dosage: 37.5 MG, 3X/DAY
  7. LISINOPRIL [Concomitant]
     Dosage: 10/12.5 MG DAILY
  8. ZOLPIDEM [Concomitant]
     Dosage: 12.5 MG Q HS
  9. SIMVASTATIN [Concomitant]
     Dosage: 40MG DAILY
  10. XANAX [Concomitant]
     Dosage: 0.25 MG, AS NEEDED
  11. LORATADINE [Concomitant]
     Indication: HYPERSENSITIVITY
     Dosage: 10 MG, AS NEEDED
  12. COUMADIN [Concomitant]
     Dosage: 10MG DAILY
  13. ZOFRAN [Concomitant]
     Indication: NAUSEA
     Dosage: 4 MG, AS NEEDED
  14. PRANDIN [Concomitant]
     Dosage: 0.5 MG, 3X/DAY
  15. BACTRUM DS [Concomitant]
     Dosage: 1 DF, 2X/DAY
  16. FLORASTOR [Concomitant]
  17. OSCAL [Concomitant]
     Dosage: 1 DF, 2X/DAY
  18. VITAMIN B2 [Concomitant]
     Dosage: 200 MG, 2X/DAY
  19. BLACK COHOSH [Concomitant]
     Dosage: 540MG DAILY
  20. FISH OIL [Concomitant]
     Dosage: 1000MG DAILY
  21. MAGNESIUM [Concomitant]
     Dosage: 250 MG, 2X/DAY
  22. ARMOUR THYROID [Concomitant]
     Dosage: 90 MG, UNK
  23. LISINOPRIL W/HYDROCHLOROTHIAZIDE [Concomitant]
     Dosage: UNK, 10/12.5 MG DAILY
  24. CRESTOR [Concomitant]
     Dosage: 10 MG, UNK
  25. TREXIMET [Concomitant]
     Indication: MIGRAINE
     Dosage: UNK, AS NEEDED, (PRN)
  26. LIDODERM PATCH [Concomitant]
     Indication: FIBROMYALGIA
     Dosage: UNK, AS NEEDED (PRN)
  27. FIORICET [Concomitant]
     Indication: MIGRAINE
     Dosage: UNK, AS NEEDED, (PRN)
  28. TIZANIDINE HYDROCHLORIDE [Concomitant]
     Dosage: 4 MG, 1X/DAY, (2 MG 2 CAPS Q HS)
  29. DILAUDID [Concomitant]
     Dosage: UNK, (2 MG--1-2 CAPS Q 6 PRN)
  30. VITAMIN D3 [Concomitant]
     Dosage: UNK, 2000 IU DAILY
  31. VITAMIN C [Concomitant]
     Dosage: 1000 MG, UNK

REACTIONS (2)
  - Liver injury [Unknown]
  - Drug ineffective [Unknown]
